FAERS Safety Report 10261678 (Version 1)
Quarter: 2014Q2

REPORT INFORMATION
  Report Type: Spontaneous
  Country: GB (occurrence: GB)
  Receive Date: 20140626
  Receipt Date: 20140626
  Transmission Date: 20141212
  Serious: Yes (Other)
  Sender: FDA-Public Use
  Company Number: GB-ASTRAZENECA-2014SE44980

PATIENT
  Age: 22 Year
  Sex: Male

DRUGS (5)
  1. PROPOFOL [Suspect]
     Indication: SEDATION
     Dosage: MORE THAN 4MG/KG/HR
     Route: 042
  2. PROPOFOL [Suspect]
     Indication: SEDATION
     Dosage: BOLUSES
     Route: 042
  3. NORADRENALINE [Suspect]
     Indication: CEREBRAL HYPOPERFUSION
  4. NORADRENALINE [Suspect]
     Indication: CEREBRAL HYPOPERFUSION
     Dosage: UP TO 0.3MCG/KG/MIN.
  5. FENTANYL [Concomitant]
     Indication: SEDATION

REACTIONS (2)
  - Propofol infusion syndrome [Recovered/Resolved]
  - Abdominal compartment syndrome [Recovered/Resolved]
